FAERS Safety Report 9035866 (Version 3)
Quarter: 2013Q2

REPORT INFORMATION
  Report Type: Spontaneous
  Country: US (occurrence: US)
  Receive Date: 20130129
  Receipt Date: 20130403
  Transmission Date: 20140414
  Serious: Yes (Other)
  Sender: FDA-Public Use
  Company Number: US-VERTEX PHARMACEUTICALS INC.-2013-001227

PATIENT
  Age: 57 Year
  Sex: Male
  Weight: 63 kg

DRUGS (8)
  1. INCIVEK [Suspect]
     Indication: HEPATITIS C
     Dosage: 750 MG, TID
     Route: 048
     Dates: start: 20130111, end: 20130216
  2. RIBAVIRIN [Suspect]
     Indication: HEPATITIS C
     Dosage: 5 DF, QD
     Route: 048
     Dates: start: 20130111, end: 20130212
  3. RIBAVIRIN [Suspect]
     Dosage: 600 MG, QD
     Route: 048
     Dates: start: 20130213, end: 20130216
  4. PEGINTRON [Suspect]
     Indication: HEPATITIS C
     Dosage: 96 ?G, QW
     Route: 058
     Dates: start: 20130111, end: 20130216
  5. MORPHINE SULFATE [Concomitant]
  6. LEVOTHYROXINE [Concomitant]
  7. LYRICA [Concomitant]
  8. DOXAZOSIN [Concomitant]

REACTIONS (17)
  - White blood cell count decreased [Not Recovered/Not Resolved]
  - Dyspnoea [Not Recovered/Not Resolved]
  - Visual impairment [Not Recovered/Not Resolved]
  - Decreased appetite [Recovered/Resolved]
  - Urinary incontinence [Unknown]
  - Constipation [Unknown]
  - Facial pain [Unknown]
  - Epistaxis [Unknown]
  - Ageusia [Unknown]
  - Influenza like illness [Unknown]
  - Decreased activity [Unknown]
  - Asthenia [Not Recovered/Not Resolved]
  - Fatigue [Unknown]
  - Swelling face [Not Recovered/Not Resolved]
  - Blood thyroid stimulating hormone increased [Recovered/Resolved]
  - Anaemia [Not Recovered/Not Resolved]
  - Nausea [Recovered/Resolved]
